FAERS Safety Report 10216040 (Version 1)
Quarter: 2014Q2

REPORT INFORMATION
  Report Type: Spontaneous
  Country: US (occurrence: US)
  Receive Date: 20140604
  Receipt Date: 20140604
  Transmission Date: 20141212
  Serious: Yes (Hospitalization, Other)
  Sender: FDA-Public Use
  Company Number: US-009507513-1406USA000986

PATIENT
  Age: 64 Year
  Sex: 0

DRUGS (4)
  1. DECADRON [Suspect]
     Indication: PLASMA CELL MYELOMA
     Dosage: 40 MG, QOW
     Route: 048
     Dates: start: 20111202, end: 20120207
  2. DECADRON [Suspect]
     Dosage: 40 MG, QW
     Route: 048
     Dates: start: 20120208
  3. VELCADE [Suspect]
     Indication: PLASMA CELL MYELOMA
     Dosage: 2.3 MG, QOW
     Route: 042
     Dates: start: 20111202, end: 20120207
  4. VELCADE [Suspect]
     Dosage: 2.3 MG, QOW
     Route: 042
     Dates: start: 20120208, end: 20120424

REACTIONS (3)
  - Sepsis [Unknown]
  - Gastroenteritis [Unknown]
  - Normochromic normocytic anaemia [Unknown]
